FAERS Safety Report 20875927 (Version 5)
Quarter: 2025Q4

REPORT INFORMATION
  Report Type: Spontaneous
  Country: US (occurrence: US)
  Receive Date: 20220526
  Receipt Date: 20251121
  Transmission Date: 20260118
  Serious: Yes (Other)
  Sender: PFIZER
  Company Number: US-PFIZER INC-202200739546

PATIENT
  Age: 63 Year
  Sex: Female
  Weight: 83.91 kg

DRUGS (6)
  1. SOMAVERT [Suspect]
     Active Substance: PEGVISOMANT
     Indication: Acromegaly
     Dosage: 30 MG, ALTERNATE DAY (INJECT 30 MG UNDER THE SKIN EVERY OTHER DAY)
     Route: 058
     Dates: start: 2013
  2. SOMAVERT [Suspect]
     Active Substance: PEGVISOMANT
     Dosage: 30 MG, 2X/WEEK(30MG INJECTION TWICE A WEEK)
  3. LIPITOR [Concomitant]
     Active Substance: ATORVASTATIN CALCIUM
     Dosage: UNK
  4. CABERGOLINE [Concomitant]
     Active Substance: CABERGOLINE
     Indication: Acromegaly
     Dosage: 0.5 MG, 2X/WEEK(0.5MG PILL TWICE A WEEK BY MOUTH)
     Route: 048
     Dates: start: 2013
  5. BETIMOL [TIMOLOL] [Concomitant]
     Dosage: UNK
  6. VITAMIN D NOS [Concomitant]
     Active Substance: CHOLECALCIFEROL\ERGOCALCIFEROL
     Dosage: UNK

REACTIONS (4)
  - Pituitary tumour [Unknown]
  - Hip arthroplasty [Recovering/Resolving]
  - Product dose omission in error [Unknown]
  - Off label use [Unknown]

NARRATIVE: CASE EVENT DATE: 20211221
